FAERS Safety Report 9187087 (Version 1)
Quarter: 2013Q1

REPORT INFORMATION
  Report Type: Spontaneous
  Country: US (occurrence: US)
  Receive Date: 20130325
  Receipt Date: 20130325
  Transmission Date: 20140127
  Serious: No
  Sender: FDA-Public Use
  Company Number: US-009507513-1303USA012011

PATIENT
  Sex: Female

DRUGS (1)
  1. DR. SCHOLL^S INGROWN TOENAIL PAIN RELIEVER [Suspect]
     Indication: INGROWING NAIL
     Dosage: UNK, ONCE
     Route: 061

REACTIONS (10)
  - Burning sensation [Unknown]
  - Insomnia [Unknown]
  - Erythema [Recovered/Resolved]
  - Oedema peripheral [Unknown]
  - Pain in extremity [Unknown]
  - Skin warm [Unknown]
  - Blister [Unknown]
  - Skin exfoliation [Unknown]
  - Pyrexia [Recovered/Resolved]
  - Hypersensitivity [Unknown]
